FAERS Safety Report 4943910-9 (Version None)
Quarter: 2006Q1

REPORT INFORMATION
  Report Type: 
  Country: None (occurrence: None)
  Receive Date: 20060315
  Receipt Date: 20060303
  Transmission Date: 20060701
  Serious: Yes (Other)
  Sender: FDA-Public Use
  Company Number: CA-JNJFOC-20051004479

PATIENT
  Sex: Female
  Weight: 58.97 kg

DRUGS (15)
  1. INFLIXIMAB [Suspect]
     Route: 042
  2. INFLIXIMAB [Suspect]
     Route: 042
  3. ASACOL [Concomitant]
     Route: 048
  4. EXTRA STRENGTH TYLENOL [Concomitant]
     Route: 048
  5. EXTRA STRENGTH TYLENOL [Concomitant]
     Route: 048
  6. EXTRA STRENGTH TYLENOL [Concomitant]
     Indication: HEADACHE
     Route: 048
  7. MULTIVITAMIN [Concomitant]
     Route: 048
  8. MULTIVITAMIN [Concomitant]
     Route: 048
  9. MULTIVITAMIN [Concomitant]
     Route: 048
  10. MULTIVITAMIN [Concomitant]
     Route: 048
  11. MULTIVITAMIN [Concomitant]
     Route: 048
  12. MULTIVITAMIN [Concomitant]
     Route: 048
  13. MULTIVITAMIN [Concomitant]
     Route: 048
  14. MULTIVITAMIN [Concomitant]
     Route: 048
  15. FOLIC ACID [Concomitant]
     Route: 048

REACTIONS (2)
  - ABORTION SPONTANEOUS [None]
  - DRUG EXPOSURE DURING PREGNANCY [None]
